FAERS Safety Report 20234466 (Version 2)
Quarter: 2022Q1

REPORT INFORMATION
  Report Type: Spontaneous
  Country: FR (occurrence: FR)
  Receive Date: 20211227
  Receipt Date: 20220103
  Transmission Date: 20220424
  Serious: Yes (Death, Other)
  Sender: FDA-Public Use
  Company Number: None

PATIENT
  Age: 53 Year
  Sex: Male

DRUGS (12)
  1. GEMCITABINE [Suspect]
     Active Substance: GEMCITABINE
     Indication: Neoplasm malignant
     Dosage: 1650 MILLIGRAM, CYCLE
     Route: 042
     Dates: start: 20210824, end: 20210831
  2. GEMCITABINE [Suspect]
     Active Substance: GEMCITABINE
     Dosage: 1650 MILLIGRAM
     Route: 042
     Dates: start: 20210824, end: 20210831
  3. LANSOPRAZOLE [Suspect]
     Active Substance: LANSOPRAZOLE
     Indication: Product used for unknown indication
     Dosage: 30 MILLIGRAM, QD
     Route: 048
     Dates: start: 20210827, end: 20210915
  4. CISPLATIN [Suspect]
     Active Substance: CISPLATIN
     Indication: Neoplasm malignant
     Dosage: 75 MILLIGRAM/SQ. METER, CYCLE
     Route: 042
     Dates: start: 20210824, end: 20210824
  5. CISPLATIN [Suspect]
     Active Substance: CISPLATIN
     Dosage: 75 MILLIGRAM/SQ. METER
     Route: 042
     Dates: start: 20210824, end: 20210824
  6. LOVENOX [Suspect]
     Active Substance: ENOXAPARIN SODIUM
     Indication: Thrombosis prophylaxis
     Dosage: 1 DOSAGE FORM, QD
     Route: 058
     Dates: start: 20210821, end: 20210917
  7. LOVENOX [Suspect]
     Active Substance: ENOXAPARIN SODIUM
     Dosage: UNK UNK, QD
     Route: 058
     Dates: start: 20210821, end: 20210917
  8. POLYETHYLENE GLYCOLS [Suspect]
     Active Substance: POLYETHYLENE GLYCOLS
     Indication: Constipation
     Dosage: 11.8 GRAM, QD
     Route: 048
     Dates: start: 20210825, end: 20210906
  9. OXAZEPAM [Suspect]
     Active Substance: OXAZEPAM
     Indication: Agitation
     Dosage: 10 MILLIGRAM, QD
     Route: 048
     Dates: start: 20210825, end: 20210914
  10. OXAZEPAM [Suspect]
     Active Substance: OXAZEPAM
     Dosage: 10 GRAM, QD
     Route: 048
     Dates: start: 20210825, end: 20210914
  11. BACLOFEN [Concomitant]
     Active Substance: BACLOFEN
     Dosage: 10 MILLIGRAM, PRN
     Route: 048
     Dates: end: 20210917
  12. BACLOFEN [Concomitant]
     Active Substance: BACLOFEN
     Dosage: 10 MILLIGRAM
     Route: 048
     Dates: end: 20210917

REACTIONS (1)
  - Thrombotic microangiopathy [Fatal]

NARRATIVE: CASE EVENT DATE: 20210829
